FAERS Safety Report 5641802-3 (Version None)
Quarter: 2008Q1

REPORT INFORMATION
  Report Type: 
  Country: None (occurrence: None)
  Receive Date: 20080227
  Receipt Date: 20080219
  Transmission Date: 20080703
  Serious: Yes (Hospitalization)
  Sender: FDA-Public Use
  Company Number: PHBS2007JP10822

PATIENT
  Sex: Female

DRUGS (1)
  1. TOFRANIL [Suspect]
     Dosage: UNK, UNK
     Route: 048
     Dates: start: 20070626

REACTIONS (3)
  - ELECTROCARDIOGRAM ABNORMAL [None]
  - INTENTIONAL OVERDOSE [None]
  - SUICIDE ATTEMPT [None]
